FAERS Safety Report 8495335-X (Version None)
Quarter: 2012Q3

REPORT INFORMATION
  Report Type: 
  Country: None (occurrence: None)
  Receive Date: 20120709
  Receipt Date: 20120702
  Transmission Date: 20120928
  Serious: Yes (Hospitalization, Other)
  Sender: FDA-Public Use
  Company Number: US-MERCK SHARP & DOHME D.O.O.-1109USA01763

PATIENT

DRUGS (4)
  1. FOSAMAX [Suspect]
     Indication: OSTEOPENIA
     Dosage: 10 MG, UNK
     Route: 048
     Dates: start: 20020320, end: 20020614
  2. FOSAMAX [Suspect]
     Dosage: 10 MG, QW
     Route: 048
     Dates: start: 20050525
  3. FOSAMAX [Suspect]
     Dosage: 70 MG, UNK
     Route: 048
     Dates: start: 20080224, end: 20090901
  4. FOSAMAX [Suspect]
     Dosage: 70 MG, QW
     Route: 048
     Dates: start: 20020626, end: 20080127

REACTIONS (73)
  - LOW TURNOVER OSTEOPATHY [None]
  - INAPPROPRIATE SCHEDULE OF DRUG ADMINISTRATION [None]
  - FALL [None]
  - AORTIC STENOSIS [None]
  - INSOMNIA [None]
  - OEDEMA PERIPHERAL [None]
  - TRICUSPID VALVE INCOMPETENCE [None]
  - ATELECTASIS [None]
  - PLANTAR FASCIITIS [None]
  - AMNESIA [None]
  - BLOOD PRESSURE INCREASED [None]
  - IRON DEFICIENCY ANAEMIA [None]
  - FEMUR FRACTURE [None]
  - OSTEONECROSIS OF JAW [None]
  - MITRAL VALVE INCOMPETENCE [None]
  - LUNG DISORDER [None]
  - PATELLOFEMORAL PAIN SYNDROME [None]
  - GASTROOESOPHAGEAL REFLUX DISEASE [None]
  - VITAMIN D DEFICIENCY [None]
  - HYPOPARATHYROIDISM [None]
  - LACTOSE INTOLERANCE [None]
  - INCREASED TENDENCY TO BRUISE [None]
  - ORAL INFECTION [None]
  - HYPERCHOLESTEROLAEMIA [None]
  - LOWER LIMB FRACTURE [None]
  - ROTATOR CUFF SYNDROME [None]
  - HYPERTENSION [None]
  - JOINT EFFUSION [None]
  - TOOTH ABSCESS [None]
  - EUSTACHIAN TUBE DYSFUNCTION [None]
  - URINARY TRACT INFECTION [None]
  - VENOUS INSUFFICIENCY [None]
  - ANXIETY [None]
  - ANGIOPATHY [None]
  - SLEEP APNOEA SYNDROME [None]
  - OSTEOARTHRITIS [None]
  - OEDEMA [None]
  - SYNOVIAL CYST [None]
  - TENDON DISORDER [None]
  - PERIODONTAL DISEASE [None]
  - LOOSE TOOTH [None]
  - GAIT APRAXIA [None]
  - NEPHROLITHIASIS [None]
  - TOOTH DISORDER [None]
  - HYPOCALCAEMIA [None]
  - VARICOSE VEIN [None]
  - AORTIC DISORDER [None]
  - DIARRHOEA [None]
  - HAIR GROWTH ABNORMAL [None]
  - EYE DISORDER [None]
  - CHEST PAIN [None]
  - PULMONARY FIBROSIS [None]
  - LUNG NEOPLASM [None]
  - MENISCUS LESION [None]
  - SOMNOLENCE [None]
  - DIZZINESS [None]
  - HYPERLIPIDAEMIA [None]
  - MYALGIA [None]
  - ARTHRALGIA [None]
  - HAEMATURIA [None]
  - PNEUMONIA [None]
  - CARDIAC MURMUR [None]
  - CAROTID ARTERY STENOSIS [None]
  - CONSTIPATION [None]
  - UTERINE LEIOMYOMA [None]
  - BURSITIS [None]
  - MUSCLE SPASMS [None]
  - ARTERIOSCLEROSIS [None]
  - BACK PAIN [None]
  - ATRIAL TACHYCARDIA [None]
  - HYPOTHYROIDISM [None]
  - FLATULENCE [None]
  - HEPATOMEGALY [None]
